FAERS Safety Report 17112081 (Version 1)
Quarter: 2019Q4

REPORT INFORMATION
  Report Type: Spontaneous
  Country: CN (occurrence: CN)
  Receive Date: 20191204
  Receipt Date: 20191204
  Transmission Date: 20200122
  Serious: Yes (Hospitalization)
  Sender: FDA-Public Use
  Company Number: CN-BAYER-2019-214945

PATIENT
  Age: 38 Year
  Sex: Female
  Weight: 60 kg

DRUGS (1)
  1. YASMIN [Suspect]
     Active Substance: DROSPIRENONE\ETHINYL ESTRADIOL
     Indication: POLYMENORRHOEA
     Dosage: 1 DF, QD
     Route: 048
     Dates: start: 20191028, end: 20191031

REACTIONS (7)
  - Nausea [Recovered/Resolved]
  - Off label use [None]
  - Vomiting [Recovered/Resolved]
  - Product use in unapproved indication [None]
  - Dizziness [Recovered/Resolved]
  - Somnolence [Recovered/Resolved]
  - Hiccups [Recovered/Resolved]

NARRATIVE: CASE EVENT DATE: 20191028
